FAERS Safety Report 4399507-5 (Version None)
Quarter: 2004Q3

REPORT INFORMATION
  Report Type: 
  Country: None (occurrence: None)
  Receive Date: 20040712
  Receipt Date: 20040624
  Transmission Date: 20050211
  Serious: Yes (Hospitalization)
  Sender: FDA-Public Use
  Company Number: A02200402039

PATIENT
  Age: 52 Year
  Sex: Female

DRUGS (12)
  1. STILNOX-(ZOLPIDEM) - TABLET- 10 MG/ TABLET- 10 MG [Suspect]
     Indication: DEPRESSION
     Dosage: ORAL
     Route: 048
     Dates: end: 20040503
  2. STILNOX-(ZOLPIDEM) - TABLET- 10 MG/ TABLET- 10 MG [Suspect]
     Indication: OVERDOSE
     Dosage: ORAL
     Route: 048
     Dates: end: 20040503
  3. STILNOX-(ZOLPIDEM) - TABLET- 10 MG/ TABLET- 10 MG [Suspect]
     Indication: DEPRESSION
     Dosage: ORAL
     Route: 048
     Dates: start: 20040504, end: 20040504
  4. STILNOX-(ZOLPIDEM) - TABLET- 10 MG/ TABLET- 10 MG [Suspect]
     Indication: OVERDOSE
     Dosage: ORAL
     Route: 048
     Dates: start: 20040504, end: 20040504
  5. VICTAN - (ETHYL LOFLAZEPATE) - TABLET - 2 MG/TABLET - 2 MG [Suspect]
     Indication: DEPRESSION
     Dosage: ORAL
     Route: 048
     Dates: end: 20040503
  6. VICTAN - (ETHYL LOFLAZEPATE) - TABLET - 2 MG/TABLET - 2 MG [Suspect]
     Indication: OVERDOSE
     Dosage: ORAL
     Route: 048
     Dates: end: 20040503
  7. VICTAN - (ETHYL LOFLAZEPATE) - TABLET - 2 MG/TABLET - 2 MG [Suspect]
     Indication: DEPRESSION
     Dosage: ORAL
     Route: 048
     Dates: start: 20040504, end: 20040504
  8. VICTAN - (ETHYL LOFLAZEPATE) - TABLET - 2 MG/TABLET - 2 MG [Suspect]
     Indication: OVERDOSE
     Dosage: ORAL
     Route: 048
     Dates: start: 20040504, end: 20040504
  9. LAROXYL - (AMITRIPTYLINE HYDROCHLORIDE) - TABLET [Suspect]
     Indication: DEPRESSION
     Dosage: ORAL
     Route: 048
     Dates: end: 20040503
  10. LAROXYL - (AMITRIPTYLINE HYDROCHLORIDE) - TABLET [Suspect]
     Indication: OVERDOSE
     Dosage: ORAL
     Route: 048
     Dates: end: 20040503
  11. LAROXYL - (AMITRIPTYLINE HYDROCHLORIDE) - TABLET [Suspect]
     Indication: DEPRESSION
     Dosage: ORAL
     Route: 048
     Dates: start: 20040504, end: 20040504
  12. LAROXYL - (AMITRIPTYLINE HYDROCHLORIDE) - TABLET [Suspect]
     Indication: OVERDOSE
     Dosage: ORAL
     Route: 048
     Dates: start: 20040504, end: 20040504

REACTIONS (5)
  - LOSS OF CONSCIOUSNESS [None]
  - MULTIPLE DRUG OVERDOSE INTENTIONAL [None]
  - RENAL FAILURE ACUTE [None]
  - RHABDOMYOLYSIS [None]
  - SUICIDE ATTEMPT [None]
